FAERS Safety Report 25778103 (Version 1)
Quarter: 2025Q3

REPORT INFORMATION
  Report Type: Spontaneous
  Country: PS (occurrence: PS)
  Receive Date: 20250909
  Receipt Date: 20250909
  Transmission Date: 20251020
  Serious: Yes (Hospitalization)
  Sender: MYLAN
  Company Number: PS-MYLANLABS-2025M1075837

PATIENT
  Age: 6 Year
  Sex: Female

DRUGS (4)
  1. VANCOMYCIN HYDROCHLORIDE [Suspect]
     Active Substance: VANCOMYCIN HYDROCHLORIDE
     Indication: Subperiosteal abscess
     Dosage: 340 MILLIGRAM, Q6H
  2. ROCEPHIN [Suspect]
     Active Substance: CEFTRIAXONE SODIUM
     Indication: Subperiosteal abscess
  3. ROCEPHIN [Suspect]
     Active Substance: CEFTRIAXONE SODIUM
  4. AUGMENTIN [Concomitant]
     Active Substance: AMOXICILLIN\CLAVULANATE POTASSIUM
     Indication: Subperiosteal abscess

REACTIONS (1)
  - Drug ineffective [Unknown]
